FAERS Safety Report 18404934 (Version 2)
Quarter: 2020Q4

REPORT INFORMATION
  Report Type: Spontaneous
  Country: HU (occurrence: HU)
  Receive Date: 20201020
  Receipt Date: 20201021
  Transmission Date: 20210114
  Serious: Yes (Hospitalization, Other)
  Sender: FDA-Public Use
  Company Number: HU-ROCHE-2685119

PATIENT
  Age: 70 Year
  Sex: Female
  Weight: 60 kg

DRUGS (1)
  1. ROACTEMRA [Suspect]
     Active Substance: TOCILIZUMAB
     Indication: RHEUMATOID ARTHRITIS
     Dosage: TOTAL MONTHLY DOSE: 400 MG, RECENT DOSE ON 29/JUL/2020, 2/JUL/2020, 03/JUN/2020, 06/MAY/2020
     Route: 042
     Dates: start: 20090615

REACTIONS (7)
  - Weight decreased [Unknown]
  - Diverticulitis [Recovered/Resolved]
  - Abdominal abscess [Unknown]
  - Adenomatous polyposis coli [Unknown]
  - Small intestinal perforation [Recovered/Resolved]
  - Cholelithiasis [Unknown]
  - Abdominal pain [Unknown]

NARRATIVE: CASE EVENT DATE: 202005
